FAERS Safety Report 9688330 (Version 1)
Quarter: 2013Q4

REPORT INFORMATION
  Report Type: Spontaneous
  Country: US (occurrence: US)
  Receive Date: 20131114
  Receipt Date: 20131114
  Transmission Date: 20140711
  Serious: Yes (Hospitalization)
  Sender: FDA-Public Use
  Company Number: US-DRREDDYS-USA/USA/13/0035515

PATIENT
  Age: 53 Year
  Sex: Male

DRUGS (1)
  1. DONEPEZIL HYDROCHLORIDE TABLETS [Suspect]
     Indication: AMNESIA
     Route: 065

REACTIONS (6)
  - Accidental overdose [Recovered/Resolved]
  - Confusional state [Recovered/Resolved]
  - Somnolence [Recovered/Resolved]
  - Hyperhidrosis [Recovered/Resolved]
  - Sinus bradycardia [Recovered/Resolved]
  - Drug level increased [Recovered/Resolved]
